FAERS Safety Report 9775659 (Version 1)
Quarter: 2013Q4

REPORT INFORMATION
  Report Type: Spontaneous
  Country: US (occurrence: US)
  Receive Date: 20131220
  Receipt Date: 20131220
  Transmission Date: 20140711
  Serious: Yes (Disabling, Other)
  Sender: FDA-Public Use
  Company Number: US-PFIZER INC-2013364241

PATIENT
  Age: 47 Year
  Sex: Female

DRUGS (3)
  1. LYRICA [Suspect]
     Dosage: 150 MG, 3X/DAY
     Route: 048
  2. FLUOXETINE [Concomitant]
     Dosage: 20 MG, 1X/DAY (QD)
  3. GABAPENTIN [Concomitant]
     Dosage: 300 MG, 3X/DAY

REACTIONS (2)
  - Multiple sclerosis [Unknown]
  - Hypokinesia [Unknown]
